FAERS Safety Report 4462132-1 (Version None)
Quarter: 2004Q3

REPORT INFORMATION
  Report Type: 
  Country: None (occurrence: None)
  Receive Date: 20040927
  Receipt Date: 20040927
  Transmission Date: 20050211
  Serious: Yes (Hospitalization)
  Sender: FDA-Public Use
  Company Number: None

PATIENT
  Age: 42 Year
  Sex: Female
  Weight: 54.8852 kg

DRUGS (12)
  1. FLUOROURACIL [Suspect]
     Indication: COLON CANCER
     Dosage: 1660 MG/M2 X 4 DAYS INTRAVENOUS
     Route: 042
     Dates: start: 20040712, end: 20040824
  2. FLUOROURACIL [Suspect]
     Indication: LYMPHOMA
     Dosage: 1660 MG/M2 X 4 DAYS INTRAVENOUS
     Route: 042
     Dates: start: 20040712, end: 20040824
  3. CISPLATIN [Suspect]
     Indication: COLON CANCER
     Dosage: 124.5 MG X 1 DAY INTRAVENOUS
     Route: 042
     Dates: start: 20040712, end: 20040824
  4. CISPLATIN [Suspect]
     Indication: LYMPHOMA
     Dosage: 124.5 MG X 1 DAY INTRAVENOUS
     Route: 042
     Dates: start: 20040712, end: 20040824
  5. NEULASTA [Concomitant]
  6. DIFLUCAN [Concomitant]
  7. KELLY'S SOLUTION [Concomitant]
  8. AUGMENTIN [Concomitant]
  9. EMEND [Concomitant]
  10. ATIVAN [Concomitant]
  11. DECADRON [Concomitant]
  12. ALOXI [Concomitant]

REACTIONS (5)
  - ARTHRALGIA [None]
  - BONE PAIN [None]
  - DEHYDRATION [None]
  - MARKEDLY REDUCED DIETARY INTAKE [None]
  - MYALGIA [None]
